FAERS Safety Report 9342494 (Version 1)
Quarter: 2013Q2

REPORT INFORMATION
  Report Type: Spontaneous
  Country: US (occurrence: US)
  Receive Date: 20130611
  Receipt Date: 20130611
  Transmission Date: 20140414
  Serious: Yes (Other)
  Sender: FDA-Public Use
  Company Number: US-PFIZER INC-2013174266

PATIENT
  Age: 76 Year
  Sex: Male
  Weight: 90.7 kg

DRUGS (5)
  1. ATORVASTATIN CALCIUM [Suspect]
     Indication: ARTERIAL OCCLUSIVE DISEASE
     Dosage: 40 MG, DAILY
     Route: 048
     Dates: start: 20120529, end: 20121113
  2. ATORVASTATIN CALCIUM [Suspect]
     Indication: ANGINA PECTORIS
  3. METOPROLOL [Concomitant]
     Dosage: 25 MG, DAILY
  4. INDAPAMIDE [Concomitant]
     Dosage: 2.5 MG, DAILY
  5. ZETIA [Concomitant]
     Indication: BLOOD CHOLESTEROL INCREASED
     Dosage: 20 MG, DAILY

REACTIONS (2)
  - Blood creatine phosphokinase increased [Unknown]
  - Muscle atrophy [Unknown]
